FAERS Safety Report 17628204 (Version 2)
Quarter: 2020Q3

REPORT INFORMATION
  Report Type: Spontaneous
  Country: DE (occurrence: DE)
  Receive Date: 20200406
  Receipt Date: 20200717
  Transmission Date: 20201102
  Serious: Yes (Hospitalization)
  Sender: FDA-Public Use
  Company Number: DE-TEVA-2020-DE-1218173

PATIENT
  Age: 17 Year
  Sex: Female
  Weight: 57 kg

DRUGS (3)
  1. MAXIM [Concomitant]
     Indication: ENDOMETRIOSIS
     Dosage: 1 DF
     Route: 048
     Dates: start: 201906
  2. BUSCOPAN PLUS [Concomitant]
     Active Substance: ACETAMINOPHEN\BUTYLSCOPOLAMINE BROMIDE
     Route: 048
     Dates: start: 20191126, end: 20191126
  3. ACICLOVIR 800 MG [Suspect]
     Active Substance: ACYCLOVIR
     Indication: HERPES ZOSTER
     Dosage: 4 SEPARATED DOSES, UNIT DOSE: 3200MG
     Route: 048
     Dates: start: 20191127

REACTIONS (2)
  - Dyspnoea [Recovered/Resolved]
  - Skin discolouration [Recovered/Resolved]

NARRATIVE: CASE EVENT DATE: 20191128
